FAERS Safety Report 6042529-9 (Version None)
Quarter: 2009Q1

REPORT INFORMATION
  Report Type: 
  Country: None (occurrence: None)
  Receive Date: 20090118
  Receipt Date: 20090105
  Transmission Date: 20090719
  Serious: Yes (Hospitalization)
  Sender: FDA-Public Use
  Company Number: FR-PFIZER INC-2009152845

PATIENT
  Sex: Male

DRUGS (6)
  1. AMLOR [Suspect]
     Indication: HYPERTENSION
     Dosage: 5 MG, 1X/DAY
     Route: 048
     Dates: start: 20080915, end: 20080923
  2. PREVISCAN [Suspect]
     Route: 048
     Dates: start: 20080913, end: 20080923
  3. LODOZ [Concomitant]
  4. OLMESARTAN [Concomitant]
  5. VASTAREL [Concomitant]
  6. ATARAX [Concomitant]

REACTIONS (4)
  - EOSINOPHILIA [None]
  - HEPATITIS CHOLESTATIC [None]
  - RASH PUSTULAR [None]
  - RENAL FAILURE [None]
